FAERS Safety Report 25314420 (Version 1)
Quarter: 2025Q2

REPORT INFORMATION
  Report Type: Spontaneous
  Country: US (occurrence: US)
  Receive Date: 20250514
  Receipt Date: 20250514
  Transmission Date: 20250716
  Serious: Yes (Other)
  Sender: ALEMBIC
  Company Number: US-ALEMBIC PHARMACUETICALS LIMITED-2025SCAL000462

PATIENT

DRUGS (3)
  1. CYCLOPHOSPHAMIDE [Suspect]
     Active Substance: CYCLOPHOSPHAMIDE
     Indication: Plasma cell myeloma refractory
     Route: 065
  2. Immunoglobulin [Concomitant]
     Indication: Plasma cell myeloma
     Route: 042
  3. ANAKINRA [Concomitant]
     Active Substance: ANAKINRA
     Indication: Plasma cell myeloma
     Route: 065

REACTIONS (4)
  - Bacteraemia [Unknown]
  - Erythema [Unknown]
  - Pneumonia [Unknown]
  - Therapy partial responder [Unknown]
